FAERS Safety Report 4333270-9 (Version None)
Quarter: 2004Q2

REPORT INFORMATION
  Report Type: 
  Country: None (occurrence: None)
  Receive Date: 20040405
  Receipt Date: 20040405
  Transmission Date: 20050107
  Serious: Yes (Other)
  Sender: FDA-Public Use
  Company Number: None

PATIENT
  Age: 43 Year
  Sex: Female

DRUGS (1)
  1. DESMOPRESSIN NASAL SPR 5 ML BAUSCH AND LOMB [Suspect]
     Indication: DIABETES INSIPIDUS
     Dosage: 1 SPR IN ONE NOSTRI    Q6H
     Route: 045
     Dates: start: 20031101, end: 20040326

REACTIONS (5)
  - ASTHENOPIA [None]
  - DYSGEUSIA [None]
  - NAUSEA [None]
  - PHARMACEUTICAL PRODUCT COMPLAINT [None]
  - VISION BLURRED [None]
